FAERS Safety Report 15716904 (Version 1)
Quarter: 2018Q4

REPORT INFORMATION
  Report Type: Other
  Country: FR (occurrence: FR)
  Receive Date: 20181213
  Receipt Date: 20181213
  Transmission Date: 20190205
  Serious: Yes (Hospitalization)
  Sender: FDA-Public Use
  Company Number: FR-CELLTRION INC.-2018FR024510

PATIENT

DRUGS (12)
  1. DOLIPRANE [Concomitant]
     Active Substance: ACETAMINOPHEN
  2. CALCIDIA [Concomitant]
     Active Substance: CALCIUM CARBONATE
  3. ARANESP [Concomitant]
     Active Substance: DARBEPOETIN ALFA
  4. TRUXIMA [Suspect]
     Active Substance: RITUXIMAB-ABBS
     Indication: MANTLE CELL LYMPHOMA
     Dosage: 384 MG, 1 CYCLE
     Route: 042
     Dates: start: 20180823, end: 20180823
  5. BENDAMUSTINE ACCORD [Suspect]
     Active Substance: BENDAMUSTINE
     Indication: MANTLE CELL LYMPHOMA
     Dosage: 173 MG, 1 CYCLE
     Route: 042
     Dates: start: 20180823
  6. VITAMINE B12 [Concomitant]
     Active Substance: CYANOCOBALAMIN
  7. INNOHEP [Concomitant]
     Active Substance: TINZAPARIN SODIUM
  8. VALACICLOVIR [Concomitant]
     Active Substance: VALACYCLOVIR HYDROCHLORIDE
  9. ALEPSAL                            /00023201/ [Concomitant]
     Active Substance: PHENOBARBITAL
  10. LANSOPRAZOLE. [Concomitant]
     Active Substance: LANSOPRAZOLE
  11. WELLVONE [Suspect]
     Active Substance: ATOVAQUONE
     Indication: PROPHYLAXIS
     Dosage: 1 DF, 1 DAY
     Route: 048
     Dates: start: 20181101, end: 20181106
  12. DIFFU K [Concomitant]
     Active Substance: POTASSIUM CHLORIDE

REACTIONS (2)
  - Off label use [Unknown]
  - Hepatitis [Recovering/Resolving]

NARRATIVE: CASE EVENT DATE: 20181108
